FAERS Safety Report 12908602 (Version 3)
Quarter: 2016Q4

REPORT INFORMATION
  Report Type: Report from Study
  Country: None (occurrence: US)
  Receive Date: 20161103
  Receipt Date: 20161118
  Transmission Date: 20170207
  Serious: Yes (Other)
  Sender: FDA-Public Use
  Company Number: US-ABBVIE-16K-163-1612906-00

PATIENT
  Age: 51 Year
  Sex: Male

DRUGS (2)
  1. HUMIRA [Suspect]
     Active Substance: ADALIMUMAB
     Indication: PSORIASIS
     Route: 058
     Dates: start: 20160313, end: 20160313
  2. HUMIRA [Suspect]
     Active Substance: ADALIMUMAB
     Route: 058
     Dates: start: 201603, end: 201604

REACTIONS (11)
  - Peripheral swelling [Not Recovered/Not Resolved]
  - Psoriasis [Not Recovered/Not Resolved]
  - Hepatic failure [Unknown]
  - Pain [Recovered/Resolved]
  - Genital swelling [Recovering/Resolving]
  - Asthenia [Recovered/Resolved]
  - Toxicity to various agents [Recovering/Resolving]
  - Joint swelling [Not Recovered/Not Resolved]
  - Pyrexia [Recovering/Resolving]
  - Immunodeficiency [Unknown]
  - Influenza like illness [Recovering/Resolving]

NARRATIVE: CASE EVENT DATE: 2016
